FAERS Safety Report 8955313 (Version 2)
Quarter: 2012Q4

REPORT INFORMATION
  Report Type: Report from Study
  Country: CA (occurrence: CA)
  Receive Date: 20121207
  Receipt Date: 20121214
  Transmission Date: 20130627
  Serious: Yes (Death)
  Sender: FDA-Public Use
  Company Number: CA-ROCHE-1165576

PATIENT
  Sex: Female
  Weight: 55.39 kg

DRUGS (9)
  1. RITUXIMAB [Suspect]
     Indication: RHEUMATOID ARTHRITIS
     Route: 042
     Dates: start: 20120703, end: 20120718
  2. ATENOLOL [Concomitant]
  3. ADALAT XL [Concomitant]
  4. SYNTHROID [Concomitant]
  5. AZATHIOPRINE [Concomitant]
  6. SINGULAIR [Concomitant]
  7. SYMBICORT [Concomitant]
  8. TYLENOL #3 (CANADA) [Concomitant]
  9. SOFLAX (CANADA) [Concomitant]

REACTIONS (1)
  - Death [Fatal]
